FAERS Safety Report 21650431 (Version 16)
Quarter: 2024Q3

REPORT INFORMATION
  Report Type: Report from Study
  Country: US (occurrence: US)
  Receive Date: 20221128
  Receipt Date: 20240926
  Transmission Date: 20241017
  Serious: No
  Sender: GLAXOSMITHKLINE
  Company Number: US-GLAXOSMITHKLINE-US2022AMR176048

PATIENT
  Age: 43 Year
  Sex: Female

DRUGS (5)
  1. NIRAPARIB [Suspect]
     Active Substance: NIRAPARIB
     Indication: Ovarian cancer
     Dosage: 200 MG, QD
  2. NIRAPARIB [Suspect]
     Active Substance: NIRAPARIB
     Dosage: 200 MG, QD
  3. NIRAPARIB [Suspect]
     Active Substance: NIRAPARIB
     Indication: Ovarian cancer
     Dosage: 200 MG, QD
     Dates: start: 202212
  4. NIRAPARIB [Suspect]
     Active Substance: NIRAPARIB
     Dosage: 100 MG, QD
     Dates: start: 202311
  5. NIRAPARIB [Suspect]
     Active Substance: NIRAPARIB
     Dosage: 200 MG, QD
     Route: 048
     Dates: start: 202401

REACTIONS (28)
  - Flatulence [Not Recovered/Not Resolved]
  - Abdominal distension [Unknown]
  - Pruritus [Not Recovered/Not Resolved]
  - Gastrooesophageal reflux disease [Unknown]
  - Abdominal discomfort [Unknown]
  - Nasopharyngitis [Unknown]
  - Abdominal tenderness [Recovered/Resolved]
  - Fatigue [Recovered/Resolved]
  - Full blood count decreased [Unknown]
  - Tanning [Unknown]
  - Somnolence [Unknown]
  - Asthenopia [Unknown]
  - Memory impairment [Unknown]
  - Haemoglobin decreased [Recovering/Resolving]
  - Confusional state [Unknown]
  - Viral infection [Unknown]
  - Pyrexia [Unknown]
  - Cough [Unknown]
  - Anaemia [Recovered/Resolved]
  - Headache [Recovered/Resolved]
  - Blood potassium decreased [Not Recovered/Not Resolved]
  - Blood pressure increased [Recovered/Resolved]
  - Amnesia [Not Recovered/Not Resolved]
  - Back pain [Not Recovered/Not Resolved]
  - Incorrect dose administered [Unknown]
  - Product dose omission issue [Unknown]
  - Product use issue [Unknown]
  - Product dose omission in error [Unknown]

NARRATIVE: CASE EVENT DATE: 20230201
